FAERS Safety Report 23738511 (Version 1)
Quarter: 2024Q2

REPORT INFORMATION
  Report Type: Spontaneous
  Country: US (occurrence: US)
  Receive Date: 20240412
  Receipt Date: 20240412
  Transmission Date: 20240716
  Serious: Yes (Other)
  Sender: FDA-Public Use
  Company Number: US-GREER Laboratories, Inc.-2155522

PATIENT
  Age: 39 Year
  Sex: Male

DRUGS (10)
  1. PHLEUM PRATENSE POLLEN [Suspect]
     Active Substance: PHLEUM PRATENSE POLLEN
     Indication: Product used for unknown indication
     Route: 058
     Dates: start: 202208
  2. PAECILOMYCES VARIOTII [Suspect]
     Active Substance: PAECILOMYCES VARIOTII
     Route: 058
     Dates: start: 202208
  3. VITAMIN D3 [Concomitant]
     Active Substance: CHOLECALCIFEROL
     Route: 048
  4. ASCORBIC ACID [Concomitant]
     Active Substance: ASCORBIC ACID
  5. FAMOTIDINE [Concomitant]
     Active Substance: FAMOTIDINE
  6. AZELASTINE HYDROCHLORIDE [Concomitant]
     Active Substance: AZELASTINE HYDROCHLORIDE
  7. ALAVERT ALLERGY [Concomitant]
     Active Substance: LORATADINE
     Route: 048
  8. JOHNSON GRASS POLLEN [Suspect]
     Active Substance: SORGHUM HALEPENSE POLLEN
     Route: 058
     Dates: start: 202208
  9. DOG EPITHELIA [Suspect]
     Active Substance: CANIS LUPUS FAMILIARIS SKIN
     Route: 058
     Dates: start: 202208
  10. EPIDERMOPHYTON FLOCCOSUM [Suspect]
     Active Substance: EPIDERMOPHYTON FLOCCOSUM
     Route: 058
     Dates: start: 202208

REACTIONS (3)
  - Anaphylactic reaction [Recovered/Resolved]
  - Expired product administered [Unknown]
  - Angioedema [Recovered/Resolved]

NARRATIVE: CASE EVENT DATE: 20230601
